FAERS Safety Report 5495670-3 (Version None)
Quarter: 2007Q4

REPORT INFORMATION
  Report Type: 
  Country: None (occurrence: None)
  Receive Date: 20071015
  Receipt Date: 20070523
  Transmission Date: 20080405
  Serious: Yes (Other)
  Sender: FDA-Public Use
  Company Number: S07-USA-02220-01

PATIENT
  Age: 59 Year
  Sex: Female

DRUGS (8)
  1. LEXAPRO [Suspect]
     Indication: DEPRESSION
     Dosage: 20 MG QD PO
     Route: 048
     Dates: end: 20070423
  2. LEXAPRO [Suspect]
     Indication: DEPRESSION
     Dosage: 10 MG QD PO
     Route: 048
     Dates: start: 20070424, end: 20070508
  3. LEXAPRO [Suspect]
     Indication: DEPRESSION
     Dosage: 5 MG QD PO
     Route: 048
     Dates: start: 20070509, end: 20070522
  4. LEXAPRO [Suspect]
     Indication: DEPRESSION
     Dosage: 5 MG QOD PO
     Route: 048
     Dates: start: 20070523
  5. LEXAPRO [Suspect]
     Indication: DEPRESSION
     Dosage: 10 MG QD PO
     Route: 048
     Dates: start: 20061201
  6. PLETAL [Concomitant]
  7. HYDROCODONE BITARTRATE [Concomitant]
  8. UNKNOWN PATCH [Concomitant]

REACTIONS (4)
  - FLAT AFFECT [None]
  - IMPULSE-CONTROL DISORDER [None]
  - MENTAL STATUS CHANGES [None]
  - SUICIDAL IDEATION [None]
